FAERS Safety Report 26105528 (Version 1)
Quarter: 2025Q4

REPORT INFORMATION
  Report Type: Spontaneous
  Country: EU (occurrence: None)
  Receive Date: 20251201
  Receipt Date: 20251201
  Transmission Date: 20260117
  Serious: Yes (Other)
  Sender: AUROBINDO
  Company Number: EU-LRB-01097864

PATIENT
  Age: 60 Year
  Sex: Female
  Weight: 62 kg

DRUGS (2)
  1. AMLODIPINE [Suspect]
     Active Substance: AMLODIPINE BESYLATE
     Indication: Hypertension
     Dosage: 1 DOSAGE FORM
     Dates: start: 20150301, end: 20250824
  2. ATORVASTATINE TABLET 10MG / LIPITOR TABLET OMHULD 10MG [Concomitant]
     Indication: Product used for unknown indication
     Dosage: 10 MILLIGRAM

REACTIONS (7)
  - Renal impairment [Recovered/Resolved]
  - Heart rate decreased [Recovered/Resolved]
  - Extrasystoles [Recovered/Resolved]
  - Pruritus [Recovered/Resolved]
  - Dizziness [Recovered/Resolved]
  - Fatigue [Recovered/Resolved]
  - Myalgia [Recovered/Resolved]
